FAERS Safety Report 9781936 (Version 2)
Quarter: 2014Q1

REPORT INFORMATION
  Report Type: Spontaneous
  Country: US (occurrence: US)
  Receive Date: 20131225
  Receipt Date: 20140312
  Transmission Date: 20141002
  Serious: No
  Sender: FDA-Public Use
  Company Number: US-TEVA-451868USA

PATIENT
  Age: 84 Year
  Sex: Female
  Weight: 71.73 kg

DRUGS (6)
  1. AZILECT [Suspect]
     Indication: PARKINSON^S DISEASE
  2. MIRAPEX [Concomitant]
     Indication: PARKINSON^S DISEASE
  3. SINEMET [Concomitant]
     Indication: PARKINSON^S DISEASE
  4. GABAPENTIN [Concomitant]
     Indication: NEURALGIA
  5. METOPROLOL [Concomitant]
     Indication: HYPERTENSION
     Dosage: 25 MILLIGRAM DAILY;
  6. LUMIGAN [Concomitant]
     Indication: GLAUCOMA

REACTIONS (2)
  - Tremor [Unknown]
  - Drug dose omission [Unknown]
